FAERS Safety Report 8088865-6 (Version None)
Quarter: 2012Q1

REPORT INFORMATION
  Report Type: 
  Country: None (occurrence: None)
  Receive Date: 20120128
  Receipt Date: 20110614
  Transmission Date: 20120608
  Serious: No
  Sender: FDA-Public Use
  Company Number: US-ABBOTT-11P-163-0717190-00

PATIENT
  Sex: Female

DRUGS (10)
  1. HUMIRA [Suspect]
     Indication: PSORIATIC ARTHROPATHY
  2. ZONEGRAN [Concomitant]
     Indication: MIGRAINE
     Route: 048
  3. HUMIRA [Suspect]
     Indication: PSORIATIC ARTHROPATHY
     Dates: start: 20101022
  4. METFFORMIN HYDROCHLORIDE [Concomitant]
     Indication: POLYCYSTIC OVARIES
     Dosage: AT BEDTIME
  5. SINGULAIR [Concomitant]
     Indication: HYPERSENSITIVITY
  6. ADDERALL 5 [Concomitant]
  7. ZYRTEC [Concomitant]
     Indication: HYPERSENSITIVITY
  8. SYNTHROID [Concomitant]
     Indication: HYPOTHYROIDISM
     Dosage: 75 MCG EACH DAY
     Route: 048
  9. PRAVASTATIN [Concomitant]
     Indication: BLOOD CHOLESTEROL INCREASED
     Route: 048
  10. ADDERALL 5 [Concomitant]
     Indication: SLEEP DISORDER

REACTIONS (6)
  - INJECTION SITE PAIN [None]
  - PSORIATIC ARTHROPATHY [None]
  - DEVICE MALFUNCTION [None]
  - INCORRECT DOSE ADMINISTERED [None]
  - WRONG TECHNIQUE IN DRUG USAGE PROCESS [None]
  - ARTHRALGIA [None]
